FAERS Safety Report 9075761 (Version 1)
Quarter: 2013Q1

REPORT INFORMATION
  Report Type: Spontaneous
  Country: PR (occurrence: PR)
  Receive Date: 20130131
  Receipt Date: 20130131
  Transmission Date: 20140127
  Serious: No
  Sender: FDA-Public Use
  Company Number: PR-ABBOTT-12P-131-0992437-00

PATIENT
  Age: 35 None
  Sex: Female

DRUGS (2)
  1. HUMIRA [Suspect]
     Indication: CROHN^S DISEASE
     Route: 058
     Dates: start: 20120905
  2. INTEGRA PLUS [Concomitant]
     Indication: HAEMOGLOBIN DECREASED
     Route: 048
     Dates: start: 201208

REACTIONS (8)
  - Pyrexia [Recovered/Resolved]
  - Oropharyngeal pain [Recovered/Resolved]
  - Chills [Recovered/Resolved]
  - Injection site erythema [Recovered/Resolved]
  - Diarrhoea [Recovering/Resolving]
  - Injection site pruritus [Recovered/Resolved]
  - Injection site swelling [Recovered/Resolved]
  - Incorrect dose administered [Recovered/Resolved]
